FAERS Safety Report 10243278 (Version 1)
Quarter: 2014Q2

REPORT INFORMATION
  Report Type: Spontaneous
  Country: US (occurrence: None)
  Receive Date: 20140616
  Receipt Date: 20140616
  Transmission Date: 20141212
  Serious: Yes (Other)
  Sender: FDA-Public Use
  Company Number: UNT-2014-001767

PATIENT
  Age: 65 Year
  Sex: 0
  Weight: 56.2 kg

DRUGS (1)
  1. ORENITRAM [Suspect]
     Indication: PULMONARY ARTERIAL HYPERTENSION
     Route: 048
     Dates: start: 20140529

REACTIONS (1)
  - Cellulitis [None]
